FAERS Safety Report 20228864 (Version 2)
Quarter: 2024Q1

REPORT INFORMATION
  Report Type: Spontaneous
  Country: US (occurrence: US)
  Receive Date: 20211225
  Receipt Date: 20240118
  Transmission Date: 20240410
  Serious: No
  Sender: FDA-Public Use
  Company Number: US-SA-SAC20211223000345

PATIENT
  Age: 60 Year
  Sex: Female

DRUGS (2)
  1. AUBAGIO [Suspect]
     Active Substance: TERIFLUNOMIDE
     Indication: Multiple sclerosis
     Dosage: 14 MG, QD
     Route: 048
     Dates: start: 20191003
  2. VUMERITY [Suspect]
     Active Substance: DIROXIMEL FUMARATE
     Dosage: UNK UNK, BID

REACTIONS (4)
  - Pain [Unknown]
  - Diarrhoea [Unknown]
  - Pain in extremity [Not Recovered/Not Resolved]
  - Product dose omission in error [Unknown]
